FAERS Safety Report 19588393 (Version 1)
Quarter: 2021Q3

REPORT INFORMATION
  Report Type: Spontaneous
  Country: EG (occurrence: EG)
  Receive Date: 20210721
  Receipt Date: 20210721
  Transmission Date: 20211014
  Serious: Yes (Death, Life-Threatening, Hospitalization, Other)
  Sender: FDA-Public Use
  Company Number: EG-ACCORD-219333

PATIENT
  Age: 12 Year
  Sex: Female

DRUGS (4)
  1. PREDNISONE. [Suspect]
     Active Substance: PREDNISONE
     Indication: SYSTEMIC LUPUS ERYTHEMATOSUS
     Dosage: DECREASED TO 30 MG/DAY, FURTHER DECREASED TO 20 MG/DAY
  2. CYCLOPHOSPHAMIDE/CYCLOPHOSPHAMIDE MONOHYDRATE [Suspect]
     Active Substance: CYCLOPHOSPHAMIDE
     Indication: SYSTEMIC LUPUS ERYTHEMATOSUS
  3. MYCOPHENOLIC ACID. [Suspect]
     Active Substance: MYCOPHENOLIC ACID
     Indication: SYSTEMIC LUPUS ERYTHEMATOSUS
  4. HYDROXYCHLOROQUINE [Suspect]
     Active Substance: HYDROXYCHLOROQUINE
     Indication: SYSTEMIC LUPUS ERYTHEMATOSUS

REACTIONS (8)
  - Disseminated cryptococcosis [Fatal]
  - Meningitis cryptococcal [Fatal]
  - Optic atrophy [Fatal]
  - Intracranial pressure increased [Fatal]
  - Cerebral atrophy [Fatal]
  - Infection [Fatal]
  - Cerebral ventricle dilatation [Fatal]
  - Cryptococcosis [Fatal]

NARRATIVE: CASE EVENT DATE: 2016
